FAERS Safety Report 7299136-X (Version None)
Quarter: 2011Q1

REPORT INFORMATION
  Report Type: 
  Country: None (occurrence: None)
  Receive Date: 20110216
  Receipt Date: 20110216
  Transmission Date: 20110831
  Serious: Yes (Other)
  Sender: FDA-Public Use
  Company Number: None

PATIENT
  Age: 58 Year
  Sex: Female
  Weight: 168.2845 kg

DRUGS (1)
  1. ALCOHOL PREP PAD 70% V/V TRIAD [Suspect]
     Indication: THERAPEUTIC SKIN CARE TOPICAL
     Dosage: 1 PAD T.I.D. CUTANEOUS
     Route: 003
     Dates: start: 20100901, end: 20110115

REACTIONS (2)
  - CELLULITIS [None]
  - PRODUCT CONTAMINATION MICROBIAL [None]
